FAERS Safety Report 21592871 (Version 17)
Quarter: 2024Q4

REPORT INFORMATION
  Report Type: Report from Study
  Country: US (occurrence: US)
  Receive Date: 20221114
  Receipt Date: 20241223
  Transmission Date: 20250115
  Serious: Yes (Hospitalization, Other)
  Sender: NOVARTIS
  Company Number: US-002147023-NVSC2022US255633

PATIENT
  Age: 51 Year
  Sex: Female

DRUGS (2)
  1. KESIMPTA [Suspect]
     Active Substance: OFATUMUMAB
     Indication: Primary progressive multiple sclerosis
     Dosage: 20 MG, QMO
     Route: 058
     Dates: start: 2022
  2. KESIMPTA [Suspect]
     Active Substance: OFATUMUMAB
     Indication: Multiple sclerosis

REACTIONS (30)
  - COVID-19 [Unknown]
  - Influenza [Unknown]
  - Haemorrhage [Unknown]
  - Multiple sclerosis [Unknown]
  - Hemiparesis [Recovering/Resolving]
  - Limb discomfort [Unknown]
  - Back pain [Unknown]
  - Headache [Unknown]
  - Gait disturbance [Unknown]
  - Circulatory collapse [Unknown]
  - Fatigue [Unknown]
  - Vertigo [Unknown]
  - Increased tendency to bruise [Unknown]
  - Platelet count decreased [Unknown]
  - Dizziness [Unknown]
  - Asthenia [Unknown]
  - Energy increased [Unknown]
  - Hyperhidrosis [Unknown]
  - Urinary incontinence [Unknown]
  - Anal incontinence [Unknown]
  - Weight decreased [Unknown]
  - Illness [Unknown]
  - Blood potassium decreased [Unknown]
  - Muscular weakness [Unknown]
  - Frustration tolerance decreased [Unknown]
  - Stress [Unknown]
  - Peroneal nerve palsy [Unknown]
  - Device malfunction [Unknown]
  - Drug ineffective [Unknown]
  - JC polyomavirus test positive [Unknown]

NARRATIVE: CASE EVENT DATE: 20240422
